FAERS Safety Report 25130572 (Version 1)
Quarter: 2025Q1

REPORT INFORMATION
  Report Type: Spontaneous
  Country: US (occurrence: US)
  Receive Date: 20250327
  Receipt Date: 20250327
  Transmission Date: 20250408
  Serious: Yes (Death, Hospitalization, Other)
  Sender: CHEPLAPHARM
  Company Number: US-CHEPLA-2025003848

PATIENT
  Sex: Male

DRUGS (3)
  1. VALGANCICLOVIR [Suspect]
     Active Substance: VALGANCICLOVIR
     Indication: Antiviral treatment
  2. EVEROLIMUS [Suspect]
     Active Substance: EVEROLIMUS
     Indication: Skin cancer
     Dates: start: 2024
  3. EVEROLIMUS [Suspect]
     Active Substance: EVEROLIMUS
     Indication: Renal disorder
     Dates: start: 2024

REACTIONS (8)
  - Sepsis [Fatal]
  - Hodgkin^s disease [Unknown]
  - Delirium [Unknown]
  - Infection [Not Recovered/Not Resolved]
  - Limb injury [Unknown]
  - Aggression [Unknown]
  - Anaemia [Unknown]
  - Impaired healing [Unknown]
